FAERS Safety Report 12536538 (Version 1)
Quarter: 2016Q3

REPORT INFORMATION
  Report Type: Spontaneous
  Country: US (occurrence: US)
  Receive Date: 20160707
  Receipt Date: 20160707
  Transmission Date: 20161109
  Serious: No
  Sender: FDA-Public Use
  Company Number: US-PFIZER INC-2016301685

PATIENT
  Sex: Female

DRUGS (2)
  1. CARBIDOPA/LEVODOPA [Concomitant]
     Indication: DYSTONIA
  2. RELPAX [Suspect]
     Active Substance: ELETRIPTAN HYDROBROMIDE
     Indication: MIGRAINE
     Dosage: UNK

REACTIONS (2)
  - Sedation [Unknown]
  - Incorrect dose administered [Unknown]
